FAERS Safety Report 24277164 (Version 1)
Quarter: 2024Q3

REPORT INFORMATION
  Report Type: Spontaneous
  Country: US (occurrence: None)
  Receive Date: 20240829
  Receipt Date: 20240829
  Transmission Date: 20241016
  Serious: No
  Sender: Public
  Company Number: None

PATIENT

DRUGS (1)
  1. SEPTOCAINE [Suspect]
     Active Substance: ARTICAINE HYDROCHLORIDE\EPINEPHRINE BITARTRATE

REACTIONS (6)
  - Product name confusion [None]
  - Product name confusion [None]
  - Product packaging confusion [None]
  - Product label confusion [None]
  - Product storage error [None]
  - Product selection error [None]
